FAERS Safety Report 7360407-X (Version None)
Quarter: 2011Q1

REPORT INFORMATION
  Report Type: 
  Country: None (occurrence: None)
  Receive Date: 20110318
  Receipt Date: 20100804
  Transmission Date: 20110831
  Serious: Yes (Other)
  Sender: FDA-Public Use
  Company Number: US-BAYER-201017357NA

PATIENT
  Sex: Female
  Weight: 102.4 kg

DRUGS (6)
  1. YASMIN [Suspect]
     Indication: PRODUCT USED FOR UNKNOWN INDICATION
     Route: 048
     Dates: start: 20070801, end: 20080401
  2. ZOLOFT [Concomitant]
     Dosage: 100 MG, QD
     Route: 048
  3. OMEPRAZOLE [Concomitant]
  4. IBUPROFEN [Concomitant]
  5. NEXIUM [Concomitant]
  6. HUMULIN N [INSULIN HUMAN] [Concomitant]
     Dosage: UNK
     Dates: start: 20070101

REACTIONS (1)
  - DEEP VEIN THROMBOSIS [None]
